FAERS Safety Report 6925462-7 (Version None)
Quarter: 2010Q3

REPORT INFORMATION
  Report Type: 
  Country: None (occurrence: None)
  Receive Date: 20100816
  Receipt Date: 20100807
  Transmission Date: 20110219
  Serious: Yes (Other)
  Sender: FDA-Public Use
  Company Number: US-ROCHE-715309

PATIENT
  Age: 65 Year
  Sex: Female
  Weight: 56.7 kg

DRUGS (8)
  1. BONIVA [Suspect]
     Indication: OSTEOPOROSIS
     Route: 042
  2. NEURONTIN [Concomitant]
     Route: 048
     Dates: start: 20100716
  3. GLUCOSAMINE [Concomitant]
  4. IRON [Concomitant]
     Dosage: AS NEEDED
  5. PREDNISONE [Concomitant]
     Dosage: 40MGX3DAYS,30MGX3DAYS,20MGX3DAYS,10MGX3DAYS ONCE DAILY
  6. PROTONIX [Concomitant]
  7. ALLEGRA [Concomitant]
  8. ASPIRIN [Concomitant]

REACTIONS (3)
  - BURNING SENSATION [None]
  - PHOTOSENSITIVITY REACTION [None]
  - RASH VESICULAR [None]
